FAERS Safety Report 6315313-6 (Version None)
Quarter: 2009Q3

REPORT INFORMATION
  Report Type: 
  Country: None (occurrence: None)
  Receive Date: 20090819
  Receipt Date: 20090813
  Transmission Date: 20100115
  Serious: Yes (Hospitalization, Other)
  Sender: FDA-Public Use
  Company Number: US-AVENTIS-200917221US

PATIENT
  Sex: Female

DRUGS (3)
  1. LANTUS [Suspect]
     Route: 058
     Dates: start: 20040101
  2. APIDRA [Suspect]
     Dosage: DOSE: BREAKFAST, LUNCH AND SUPPER
     Route: 058
     Dates: start: 20090601
  3. REGULAR INSULIN [Suspect]
     Dosage: DOSE: UNK
     Dates: start: 20040101, end: 20090601

REACTIONS (3)
  - BLOOD GLUCOSE INCREASED [None]
  - HOSPITALISATION [None]
  - WEIGHT INCREASED [None]
